FAERS Safety Report 9685224 (Version 4)
Quarter: 2014Q1

REPORT INFORMATION
  Report Type: Report from Study
  Country: US (occurrence: US)
  Receive Date: 20131113
  Receipt Date: 20140122
  Transmission Date: 20141002
  Serious: Yes (Hospitalization)
  Sender: FDA-Public Use
  Company Number: US-JNJFOC-20131103411

PATIENT
  Age: 16 Year
  Sex: Male
  Weight: 112.45 kg

DRUGS (7)
  1. REMICADE [Suspect]
     Indication: INFLAMMATORY BOWEL DISEASE
     Route: 042
     Dates: start: 20050221
  2. 5-ASA [Concomitant]
     Indication: INFLAMMATORY BOWEL DISEASE
     Route: 048
  3. ANTIBIOTICS [Concomitant]
     Indication: INFLAMMATORY BOWEL DISEASE
     Route: 065
  4. VITAMIN D [Concomitant]
     Route: 065
  5. BUDESONIDE [Concomitant]
     Indication: INFLAMMATORY BOWEL DISEASE
     Route: 065
  6. OMEPRAZOLE [Concomitant]
     Route: 065
  7. ACETAMINOPHEN [Concomitant]
     Route: 065

REACTIONS (1)
  - Respiratory distress [Recovered/Resolved]
